FAERS Safety Report 17731514 (Version 4)
Quarter: 2021Q1

REPORT INFORMATION
  Report Type: Spontaneous
  Country: FR (occurrence: FR)
  Receive Date: 20200430
  Receipt Date: 20210302
  Transmission Date: 20210419
  Serious: Yes (Other)
  Sender: FDA-Public Use
  Company Number: FR-GILEAD-2020-0462922

PATIENT
  Age: 49 Year
  Sex: Male

DRUGS (5)
  1. GENVOYA [Suspect]
     Active Substance: COBICISTAT\ELVITEGRAVIR\EMTRICITABINE\TENOFOVIR ALAFENAMIDE FUMARATE
     Indication: HIV TEST POSITIVE
     Dosage: UNK
     Route: 065
     Dates: start: 2013
  2. DAFALGAN [Concomitant]
     Active Substance: ACETAMINOPHEN
  3. JULUCA [Concomitant]
     Active Substance: DOLUTEGRAVIR SODIUM\RILPIVIRINE HYDROCHLORIDE
     Dosage: UNK
  4. LEXOMIL [Concomitant]
     Active Substance: BROMAZEPAM
  5. TERCIAN [CYAMEMAZINE TARTRATE] [Concomitant]
     Active Substance: CYAMEMAZINE

REACTIONS (8)
  - Loss of consciousness [Recovered/Resolved]
  - Libido disorder [Recovered/Resolved]
  - Suicidal ideation [Recovered/Resolved]
  - Paraesthesia [Recovering/Resolving]
  - Diplegia [Recovered/Resolved]
  - Muscle spasms [Recovered/Resolved]
  - Hypoaesthesia [Recovered/Resolved]
  - Fatigue [Recovered/Resolved]

NARRATIVE: CASE EVENT DATE: 2017
